FAERS Safety Report 15681068 (Version 3)
Quarter: 2019Q1

REPORT INFORMATION
  Report Type: Spontaneous
  Country: JP (occurrence: JP)
  Receive Date: 20181203
  Receipt Date: 20190206
  Transmission Date: 20190417
  Serious: Yes (Other)
  Sender: FDA-Public Use
  Company Number: JP-GLAXOSMITHKLINE-JP2018JPN214812

PATIENT
  Age: 71 Year
  Sex: Male

DRUGS (6)
  1. BETANIS [Concomitant]
     Active Substance: MIRABEGRON
     Dosage: 25 MG, UNK
     Dates: start: 20180511
  2. NIFEDIPINE CR [Concomitant]
     Active Substance: NIFEDIPINE
     Dosage: 40 MG, UNK
     Dates: start: 201507
  3. MIKELAN LA [Concomitant]
     Active Substance: CARTEOLOL HYDROCHLORIDE
     Dosage: 15 MG, UNK
     Dates: start: 201507
  4. AVOLVE [Suspect]
     Active Substance: DUTASTERIDE
     Indication: BENIGN PROSTATIC HYPERPLASIA
     Dosage: 0.5 MG, QD
     Route: 048
     Dates: start: 20180511
  5. NAFTOPIDIL [Concomitant]
     Active Substance: NAFTOPIDIL
     Dosage: 50 MG, UNK
     Dates: start: 20180511
  6. ALLOPURINOL. [Concomitant]
     Active Substance: ALLOPURINOL
     Dosage: 100 MG, UNK
     Dates: start: 201507

REACTIONS (4)
  - Treatment noncompliance [Unknown]
  - Intercepted product prescribing error [Unknown]
  - Benign prostatic hyperplasia [Unknown]
  - Dementia [Unknown]

NARRATIVE: CASE EVENT DATE: 2018
